FAERS Safety Report 20131232 (Version 3)
Quarter: 2021Q4

REPORT INFORMATION
  Report Type: Report from Study
  Country: US (occurrence: US)
  Receive Date: 20211130
  Receipt Date: 20211210
  Transmission Date: 20220303
  Serious: Yes (Other)
  Sender: FDA-Public Use
  Company Number: US-TAKEDA-2021TUS074227

PATIENT
  Sex: Male
  Weight: 132 kg

DRUGS (25)
  1. .ALPHA.1-PROTEINASE INHIBITOR HUMAN [Suspect]
     Active Substance: .ALPHA.1-PROTEINASE INHIBITOR HUMAN
     Indication: Alpha-1 antitrypsin deficiency
     Dosage: 60 MICROGRAM/KILOGRAM, 1/WEEK
     Route: 042
     Dates: start: 20211019
  2. .ALPHA.1-PROTEINASE INHIBITOR HUMAN [Suspect]
     Active Substance: .ALPHA.1-PROTEINASE INHIBITOR HUMAN
     Indication: Alpha-1 antitrypsin deficiency
     Dosage: 60 MICROGRAM/KILOGRAM, 1/WEEK
     Route: 042
     Dates: start: 20211019
  3. .ALPHA.1-PROTEINASE INHIBITOR HUMAN [Suspect]
     Active Substance: .ALPHA.1-PROTEINASE INHIBITOR HUMAN
     Dosage: 7574 MILLIGRAM, 1/WEEK
     Route: 042
     Dates: start: 20211019
  4. .ALPHA.1-PROTEINASE INHIBITOR HUMAN [Suspect]
     Active Substance: .ALPHA.1-PROTEINASE INHIBITOR HUMAN
     Dosage: 7574 MILLIGRAM, 1/WEEK
     Route: 042
     Dates: start: 20211019
  5. DIPHENHYDRAMINE [Concomitant]
     Active Substance: DIPHENHYDRAMINE
  6. EPINEPHRINE [Concomitant]
     Active Substance: EPINEPHRINE
  7. SODIUM CHLORIDE [Concomitant]
     Active Substance: SODIUM CHLORIDE
  8. METFORMIN [Concomitant]
     Active Substance: METFORMIN HYDROCHLORIDE
  9. GASTRIC [Concomitant]
  10. SPIRONOLACTONE [Concomitant]
     Active Substance: SPIRONOLACTONE
  11. DIGOXIN [Concomitant]
     Active Substance: DIGOXIN
  12. PIOGLITAZONE AND METFORMIN [Concomitant]
     Active Substance: METFORMIN HYDROCHLORIDE\PIOGLITAZONE HYDROCHLORIDE
  13. TRELEGY ELLIPTA [Concomitant]
     Active Substance: FLUTICASONE FUROATE\UMECLIDINIUM BROMIDE\VILANTEROL TRIFENATATE
  14. TOUJEO [Concomitant]
     Active Substance: INSULIN GLARGINE
  15. INSULIN NOS [Concomitant]
     Active Substance: INSULIN NOS
  16. SINGULAIR [Concomitant]
     Active Substance: MONTELUKAST SODIUM
  17. OXYGEN [Concomitant]
     Active Substance: OXYGEN
  18. ALBUTEROL SULFATE [Concomitant]
     Active Substance: ALBUTEROL SULFATE
  19. INHALERIN [Concomitant]
  20. XARELTO [Concomitant]
     Active Substance: RIVAROXABAN
  21. LISINOPRIL [Concomitant]
     Active Substance: LISINOPRIL
  22. VERAPAMIL [Concomitant]
     Active Substance: VERAPAMIL HYDROCHLORIDE
  23. ROSUVASTATIN CALCIUM [Concomitant]
     Active Substance: ROSUVASTATIN CALCIUM
  24. PREDNISONE [Concomitant]
     Active Substance: PREDNISONE
  25. BROMPHENIRAMINE [Concomitant]
     Active Substance: BROMPHENIRAMINE

REACTIONS (5)
  - Pneumonia [Unknown]
  - Lower respiratory tract infection [Unknown]
  - Upper respiratory tract infection [Unknown]
  - Illness [Unknown]
  - Nasopharyngitis [Unknown]
